FAERS Safety Report 6837865-X (Version None)
Quarter: 2010Q3

REPORT INFORMATION
  Report Type: 
  Country: None (occurrence: None)
  Receive Date: 20100713
  Receipt Date: 20070522
  Transmission Date: 20110219
  Serious: No
  Sender: FDA-Public Use
  Company Number: US-PFIZER INC-2007042426

PATIENT
  Sex: Female
  Weight: 59.1 kg

DRUGS (7)
  1. CHANTIX [Suspect]
     Indication: SMOKING CESSATION THERAPY
     Dates: start: 20070101
  2. DIAZEPAM [Concomitant]
  3. PREMARIN [Concomitant]
  4. DIPYRIDAMOLE [Concomitant]
  5. SEROQUEL [Concomitant]
  6. FISH OIL [Concomitant]
  7. DIURETICS [Concomitant]
     Indication: MENIERE'S DISEASE

REACTIONS (2)
  - ABNORMAL DREAMS [None]
  - NAUSEA [None]
